FAERS Safety Report 8151373-8 (Version None)
Quarter: 2012Q1

REPORT INFORMATION
  Report Type: 
  Country: None (occurrence: None)
  Receive Date: 20120220
  Receipt Date: 20120208
  Transmission Date: 20120608
  Serious: Yes (Hospitalization, Other)
  Sender: FDA-Public Use
  Company Number: CA-ROCHE-1006507

PATIENT
  Sex: Female
  Weight: 54.026 kg

DRUGS (4)
  1. DECADRON [Concomitant]
  2. ONDANSETRON [Concomitant]
  3. AVASTIN [Suspect]
     Indication: GLIOBLASTOMA
     Route: 042
     Dates: start: 20111018, end: 20120202
  4. RANITIDINE [Concomitant]

REACTIONS (5)
  - CONVULSION [None]
  - APHASIA [None]
  - BALANCE DISORDER [None]
  - PULMONARY EMBOLISM [None]
  - CONFUSIONAL STATE [None]
